FAERS Safety Report 7547542-8 (Version None)
Quarter: 2011Q2

REPORT INFORMATION
  Report Type: 
  Country: None (occurrence: None)
  Receive Date: 20110614
  Receipt Date: 20110608
  Transmission Date: 20111010
  Serious: No
  Sender: FDA-Public Use
  Company Number: US-PFIZER INC-2011125978

PATIENT
  Sex: Female

DRUGS (4)
  1. ALLEGRA [Suspect]
     Indication: NASOPHARYNGITIS
  2. ADVIL MIGRAINE LIQUI-GELS [Suspect]
     Dosage: UNK, AT NIGHT
     Dates: start: 20110519
  3. ADVIL LIQUI-GELS [Suspect]
     Dosage: IN THE MORNING
     Dates: start: 20110519
  4. ALLEGRA [Suspect]
     Indication: HYPERSENSITIVITY
     Dosage: 180 MG, 1X/DAY
     Route: 048
     Dates: start: 20110519

REACTIONS (5)
  - MALAISE [None]
  - HEADACHE [None]
  - DRUG INEFFECTIVE [None]
  - DIZZINESS [None]
  - NAUSEA [None]
